FAERS Safety Report 23152207 (Version 1)
Quarter: 2023Q4

REPORT INFORMATION
  Report Type: Report from Study
  Country: US (occurrence: US)
  Receive Date: 20231107
  Receipt Date: 20231107
  Transmission Date: 20240110
  Serious: Yes (Other)
  Sender: FDA-Public Use
  Company Number: US-KADMON CORPORATION, LLC-US-KAD-23-00019

PATIENT
  Age: 63 Year
  Sex: Male
  Weight: 90.6 kg

DRUGS (9)
  1. BELUMOSUDIL MESYLATE [Suspect]
     Active Substance: BELUMOSUDIL MESYLATE
     Indication: Chronic graft versus host disease
     Dosage: 200 MILLIGRAM, QOD
     Route: 048
     Dates: end: 20230627
  2. ZOVIRAX [Concomitant]
     Active Substance: ACYCLOVIR
     Indication: Product used for unknown indication
     Dosage: 400 MILLIGRAM, BID
     Route: 048
     Dates: start: 20230710
  3. CICLOPIROX [Concomitant]
     Active Substance: CICLOPIROX
     Indication: Product used for unknown indication
     Dosage: 2 DF, QD
     Route: 061
     Dates: start: 20230605
  4. CYCLOBENZAPRINE [Concomitant]
     Active Substance: CYCLOBENZAPRINE
     Indication: Product used for unknown indication
     Dosage: 5 MILLIGRAM, QD
     Route: 048
     Dates: start: 20230601
  5. ATARAX [Concomitant]
     Active Substance: HYDROXYZINE HYDROCHLORIDE
     Indication: Pruritus
     Dosage: 25 MILLIGRAM, PRN, ONE TO THREE EVERY NIGHT AT BEDTUNE
     Route: 048
     Dates: start: 20230607
  6. MG PLUS PROTEIN [Concomitant]
     Indication: Product used for unknown indication
     Dosage: 133 MILLIGRAM, BID
     Route: 048
     Dates: start: 20181224
  7. ELIDEL [Concomitant]
     Active Substance: PIMECROLIMUS
     Indication: Rash
     Dosage: UNK, PRN, ONCE IN THE AM TO AFFECTED AREAS OF RASH ON THE RUNK, BACK, ARMS, AND LEGS
     Route: 061
     Dates: start: 20181220
  8. TRIAMCINOLONE ACETONIDE [Concomitant]
     Active Substance: TRIAMCINOLONE ACETONIDE
     Indication: Rash
     Dosage: UNK, BID, ONCE IN THE AM TO AFFECTED AREAS OF RASH ON THE RUNK, BACK, ARMS, AND LEGS
     Route: 061
     Dates: start: 20190506
  9. BACTRIM [Concomitant]
     Active Substance: SULFAMETHOXAZOLE\TRIMETHOPRIM
     Indication: Rash
     Dosage: 1 DOSAGE FORM, QD
     Route: 048
     Dates: start: 20231003

REACTIONS (1)
  - Tongue disorder [Not Recovered/Not Resolved]

NARRATIVE: CASE EVENT DATE: 20230619
